FAERS Safety Report 9493404 (Version 3)
Quarter: 2013Q3

REPORT INFORMATION
  Report Type: Spontaneous
  Country: CN (occurrence: CN)
  Receive Date: 20130902
  Receipt Date: 20130911
  Transmission Date: 20140515
  Serious: Yes (Death, Other)
  Sender: FDA-Public Use
  Company Number: PHHY2013CN066869

PATIENT
  Age: 43 Year
  Sex: Female

DRUGS (3)
  1. AFINITOR [Suspect]
     Indication: BREAST CANCER
     Dosage: 10 MG, QD
     Route: 048
     Dates: start: 201305, end: 201306
  2. EVEROLIMUS [Suspect]
     Dosage: 2 DF, QD
     Dates: start: 201305, end: 201305
  3. EXEMESTANE [Concomitant]
     Indication: BREAST CANCER

REACTIONS (7)
  - Interstitial lung disease [Fatal]
  - Cough [Fatal]
  - Dyspnoea [Fatal]
  - Chest pain [Fatal]
  - Malaise [Fatal]
  - Fatigue [Fatal]
  - Chest discomfort [Fatal]
